FAERS Safety Report 8251279-X (Version None)
Quarter: 2012Q1

REPORT INFORMATION
  Report Type: 
  Country: None (occurrence: None)
  Receive Date: 20120328
  Receipt Date: 20120319
  Transmission Date: 20120608
  Serious: Yes (Other)
  Sender: FDA-Public Use
  Company Number: US-1190418

PATIENT
  Age: 86 Year
  Sex: Male
  Weight: 85.2762 kg

DRUGS (9)
  1. BSS [Suspect]
     Indication: INTRAOCULAR LENS IMPLANT
     Dosage: INTRAOCULAR
     Route: 031
     Dates: start: 20120206, end: 20120206
  2. BSS PLUS [Suspect]
     Indication: INTRAOCULAR LENS IMPLANT
     Dosage: INTRAOCULAR
     Route: 031
     Dates: start: 20120206, end: 20120206
  3. ZYMAXID [Concomitant]
  4. CYCLOGYL [Suspect]
     Indication: INTRAOCULAR LENS IMPLANT
     Dosage: OPHTHALMIC
     Route: 047
     Dates: start: 20120206, end: 20120206
  5. TROPICAMIDE [Concomitant]
  6. ALCAINE [Suspect]
     Indication: INTRAOCULAR LENS IMPLANT
     Dosage: OPHTHALMIC
     Route: 047
     Dates: start: 20120206, end: 20120206
  7. PHENYLEPHRINE HCL [Concomitant]
  8. BETADINE [Suspect]
     Indication: INTRAOCULAR LENS IMPLANT
     Dosage: OPHTHALMIC
     Route: 047
     Dates: start: 20120206, end: 20120206
  9. OTHER ANTIGLAUCOMA PREPARATIONS [Concomitant]

REACTIONS (1)
  - TOXIC ANTERIOR SEGMENT SYNDROME [None]
